FAERS Safety Report 21720410 (Version 2)
Quarter: 2022Q4

REPORT INFORMATION
  Report Type: Report from Study
  Country: MX (occurrence: MX)
  Receive Date: 20221213
  Receipt Date: 20221219
  Transmission Date: 20230113
  Serious: Yes (Hospitalization)
  Sender: FDA-Public Use
  Company Number: MX-002147023-NVSC2022MX288034

PATIENT
  Sex: Male
  Weight: 78 kg

DRUGS (8)
  1. ENTRESTO [Suspect]
     Active Substance: SACUBITRIL\VALSARTAN
     Indication: Hypertension
     Dosage: 1 DOSAGE FORM, Q12H
     Route: 048
     Dates: start: 2018
  2. APIXABAN [Concomitant]
     Active Substance: APIXABAN
     Indication: Anticoagulant therapy
     Dosage: 1 DOSAGE FORM (2.5), Q12H, 5 YEARS AGO, UNKNOWN EXACT DATE
     Route: 048
  3. METOPROLOL [Concomitant]
     Active Substance: METOPROLOL
     Indication: Hypertension
     Dosage: 1 DOSAGE FORM, Q12H, 5 YEARS AGO, UNKNOWN EXACT DATE
     Route: 048
  4. ATORVASTATIN [Concomitant]
     Active Substance: ATORVASTATIN
     Indication: Blood cholesterol
     Dosage: 1 DOSAGE FORM, Q24H, 5 YEARS AGO, UNKNOWN EXACT DATE
     Route: 048
  5. FUROSEMIDE [Concomitant]
     Active Substance: FUROSEMIDE
     Indication: Diuretic therapy
     Dosage: 1 DOSAGE FORM, Q6H (5 YEARS AGO, UNKNOWN EXACT DATE)
     Route: 048
  6. SPIRONOLACTONE [Concomitant]
     Active Substance: SPIRONOLACTONE
     Indication: Diuretic therapy
     Dosage: 1 DOSAGE FORM, Q24H, 5 YEARS AGO, UNKNOWN EXACT DATE
     Route: 048
  7. TYLEX [Concomitant]
     Indication: Prostatic pain
     Dosage: 1 DOSAGE FORM, Q12H, 5 YEARS AGO, UNKNOWN EXACT DATE
     Route: 048
  8. CARDURA [Concomitant]
     Active Substance: DOXAZOSIN MESYLATE
     Indication: Prostate infection
     Dosage: 1 DOSAGE FORM, Q24H, 5 YEARS AGO, UNKNOWN EXACT DATE, UNKNOWN EXACT DATE
     Route: 048

REACTIONS (5)
  - Pulmonary oedema [Recovered/Resolved]
  - Insomnia [Not Recovered/Not Resolved]
  - Fluid retention [Recovered/Resolved]
  - Fluid retention [Recovered/Resolved]
  - Product use in unapproved indication [Unknown]

NARRATIVE: CASE EVENT DATE: 20180101
